FAERS Safety Report 4578248-5 (Version None)
Quarter: 2005Q1

REPORT INFORMATION
  Report Type: 
  Country: None (occurrence: None)
  Receive Date: 20050127
  Receipt Date: 20041022
  Transmission Date: 20050727
  Serious: No
  Sender: FDA-Public Use
  Company Number: USA040977261

PATIENT
  Age: 14 Year
  Sex: Male
  Weight: 54 kg

DRUGS (4)
  1. SYMBYAX [Suspect]
     Indication: BIPOLAR DISORDER
     Dates: start: 20040201
  2. STRATTERA [Suspect]
     Indication: ATTENTION DEFICIT/HYPERACTIVITY DISORDER
     Dosage: 80 MG/L DAY
     Dates: start: 20040701
  3. TOPAMAX [Concomitant]
  4. VITAMIN B COMPLEX CAP [Concomitant]

REACTIONS (4)
  - ANXIETY [None]
  - DEPRESSION [None]
  - MOOD SWINGS [None]
  - WEIGHT INCREASED [None]
